FAERS Safety Report 13152685 (Version 1)
Quarter: 2017Q1

REPORT INFORMATION
  Report Type: Spontaneous
  Country: GB (occurrence: GB)
  Receive Date: 20170125
  Receipt Date: 20170125
  Transmission Date: 20170428
  Serious: Yes (Life-Threatening)
  Sender: FDA-Public Use
  Company Number: PHHY2017GB005883

PATIENT
  Age: 62 Year
  Sex: Male
  Weight: 72.57 kg

DRUGS (1)
  1. CLARITHROMYCIN. [Suspect]
     Active Substance: CLARITHROMYCIN
     Indication: LOWER RESPIRATORY TRACT INFECTION
     Dosage: 1 DF, BID
     Route: 048
     Dates: start: 20161230, end: 20170102

REACTIONS (6)
  - Malaise [Recovering/Resolving]
  - Cerebrovascular accident [Recovering/Resolving]
  - Confusional state [Recovering/Resolving]
  - Flatulence [Recovering/Resolving]
  - Paraesthesia [Recovering/Resolving]
  - Fatigue [Recovering/Resolving]

NARRATIVE: CASE EVENT DATE: 20161230
